FAERS Safety Report 12946486 (Version 4)
Quarter: 2016Q4

REPORT INFORMATION
  Report Type: Report from Study
  Country: US (occurrence: US)
  Receive Date: 20161116
  Receipt Date: 20161201
  Transmission Date: 20170207
  Serious: Yes (Hospitalization, Other)
  Sender: FDA-Public Use
  Company Number: US-AMGEN-USASL2016157952

PATIENT
  Age: 68 Year
  Sex: Female

DRUGS (1)
  1. ENBREL [Suspect]
     Active Substance: ETANERCEPT
     Indication: RHEUMATOID ARTHRITIS
     Dosage: 50 MG, QWK
     Route: 065
     Dates: start: 20161017

REACTIONS (11)
  - Pneumonia [Unknown]
  - Hospitalisation [Unknown]
  - Haematuria [Unknown]
  - Rash [Unknown]
  - Weight decreased [Unknown]
  - Night sweats [Unknown]
  - Malaise [Unknown]
  - Cystitis [Unknown]
  - Bronchitis [Unknown]
  - Sleep talking [Unknown]
  - Proteinuria [Unknown]

NARRATIVE: CASE EVENT DATE: 2016
